FAERS Safety Report 19752784 (Version 1)
Quarter: 2021Q3

REPORT INFORMATION
  Report Type: Spontaneous
  Country: CN (occurrence: CN)
  Receive Date: 20210827
  Receipt Date: 20210827
  Transmission Date: 20211014
  Serious: Yes (Other)
  Sender: FDA-Public Use
  Company Number: CN-SUN PHARMACEUTICAL INDUSTRIES LTD-2021R1-309211

PATIENT
  Sex: Male

DRUGS (2)
  1. DOCETAXEL. [Suspect]
     Active Substance: DOCETAXEL
     Indication: CHEMOTHERAPY
     Dosage: UNK (75 MG/M2, DAY 1)
     Route: 065
     Dates: start: 20151204, end: 20160214
  2. CISPLATIN. [Suspect]
     Active Substance: CISPLATIN
     Indication: CHEMOTHERAPY
     Dosage: UNK (75 MG/M2 DAY 1, EVERY 21 DAYS)
     Route: 065
     Dates: start: 20151204, end: 20160214

REACTIONS (2)
  - Treatment failure [Unknown]
  - Neoplasm progression [Unknown]
